FAERS Safety Report 10715689 (Version 2)
Quarter: 2015Q1

REPORT INFORMATION
  Report Type: Spontaneous
  Country: CN (occurrence: CN)
  Receive Date: 20150116
  Receipt Date: 20150119
  Transmission Date: 20150721
  Serious: Yes (Death, Life-Threatening, Other)
  Sender: FDA-Public Use
  Company Number: PHHY2015CN004343

PATIENT

DRUGS (4)
  1. VORICONAZOLE. [Interacting]
     Active Substance: VORICONAZOLE
     Indication: INFECTION PROPHYLAXIS
     Route: 042
  2. CICLOSPORIN [Interacting]
     Active Substance: CYCLOSPORINE
     Dosage: 0.5 MG/KG, QD
     Route: 042
  3. CICLOSPORIN [Suspect]
     Active Substance: CYCLOSPORINE
     Indication: PROPHYLAXIS AGAINST GRAFT VERSUS HOST DISEASE
     Dosage: 2 MG/KG, QD
     Route: 042
  4. ITRACONAZOLE. [Interacting]
     Active Substance: ITRACONAZOLE
     Indication: INFECTION PROPHYLAXIS
     Dosage: 200 MG, QD
     Route: 042

REACTIONS (5)
  - Metabolic encephalopathy [Fatal]
  - Immunosuppressant drug level increased [Unknown]
  - Cerebrovascular disorder [Fatal]
  - Neurotoxicity [Fatal]
  - Drug interaction [Unknown]
